FAERS Safety Report 19502320 (Version 1)
Quarter: 2021Q3

REPORT INFORMATION
  Report Type: Spontaneous
  Country: DE (occurrence: DE)
  Receive Date: 20210707
  Receipt Date: 20210707
  Transmission Date: 20211014
  Serious: Yes (Hospitalization)
  Sender: FDA-Public Use
  Company Number: DE-TEVA-2021-DE-1929509

PATIENT
  Age: 61 Year
  Sex: Male

DRUGS (4)
  1. DORZOLAMID/TIMOLOL [Suspect]
     Active Substance: DORZOLAMIDE HYDROCHLORIDE\TIMOLOL MALEATE
     Dosage: 2 DOSAGE FORMS DAILY;  1?0?1?0
     Route: 047
  2. NEPAFENAC [Concomitant]
     Active Substance: NEPAFENAC
     Dosage: 2 DOSAGE FORMS DAILY;   2?0?0?0,  DROPS
     Route: 047
  3. SAGEPALME [Concomitant]
     Dosage: 320 MILLIGRAM DAILY;   1?0?0?0,
     Route: 048
  4. BRIMONIDINE [Concomitant]
     Active Substance: BRIMONIDINE TARTRATE
     Dosage: 3 DOSAGE FORMS DAILY;   1?1?1?0,  DROPS
     Route: 047

REACTIONS (5)
  - Nausea [Recovering/Resolving]
  - Flank pain [Recovering/Resolving]
  - Nocturia [Recovering/Resolving]
  - Renal colic [Recovering/Resolving]
  - Back pain [Recovering/Resolving]
